FAERS Safety Report 15035625 (Version 1)
Quarter: 2018Q2

REPORT INFORMATION
  Report Type: Spontaneous
  Country: US (occurrence: US)
  Receive Date: 20180620
  Receipt Date: 20180620
  Transmission Date: 20180711
  Serious: No
  Sender: FDA-Public Use
  Company Number: US-GLAXOSMITHKLINE-US2018107647

PATIENT
  Sex: Female

DRUGS (6)
  1. ANORO ELLIPTA [Suspect]
     Active Substance: UMECLIDINIUM BROMIDE\VILANTEROL TRIFENATATE
     Indication: CHRONIC OBSTRUCTIVE PULMONARY DISEASE
     Dosage: 1 PUFF(S), PRN
     Route: 055
  2. ANORO ELLIPTA [Suspect]
     Active Substance: UMECLIDINIUM BROMIDE\VILANTEROL TRIFENATATE
     Dosage: 1 PUFF(S), BID
     Route: 055
  3. TRAMADOL. [Concomitant]
     Active Substance: TRAMADOL
  4. LORATADINE. [Concomitant]
     Active Substance: LORATADINE
  5. VALIUM [Concomitant]
     Active Substance: DIAZEPAM
  6. SOMA [Concomitant]
     Active Substance: CARISOPRODOL

REACTIONS (5)
  - Inappropriate schedule of drug administration [Unknown]
  - Overdose [Unknown]
  - Dyspnoea [Recovered/Resolved]
  - Underdose [Unknown]
  - Off label use [Unknown]
